FAERS Safety Report 4414061-7 (Version None)
Quarter: 2004Q3

REPORT INFORMATION
  Report Type: 
  Country: None (occurrence: None)
  Receive Date: 20040728
  Receipt Date: 20040712
  Transmission Date: 20050211
  Serious: Yes (Hospitalization)
  Sender: FDA-Public Use
  Company Number: GB-JNJFOC-20030803168

PATIENT
  Age: 71 Year
  Sex: Male
  Weight: 88.5 kg

DRUGS (1)
  1. IMODIUM [Suspect]
     Indication: DIARRHOEA
     Dosage: 2 MG, 2 IN 1 DAY, ORAL
     Route: 048
     Dates: start: 20030717, end: 20030717

REACTIONS (8)
  - CATHETER RELATED COMPLICATION [None]
  - CATHETER RELATED INFECTION [None]
  - CONSTIPATION [None]
  - ILEUS [None]
  - PAIN [None]
  - PROSTATIC DISORDER [None]
  - TRANSIENT ISCHAEMIC ATTACK [None]
  - URINARY RETENTION [None]
